FAERS Safety Report 9542256 (Version 1)
Quarter: 2013Q3

REPORT INFORMATION
  Report Type: Spontaneous
  Country: NL (occurrence: NL)
  Receive Date: 20130923
  Receipt Date: 20130923
  Transmission Date: 20140515
  Serious: Yes (Hospitalization, Congenital Anomaly)
  Sender: FDA-Public Use
  Company Number: NL-PFIZER INC-2013269422

PATIENT
  Sex: Female
  Weight: 2.8 kg

DRUGS (3)
  1. SERTRALINE [Suspect]
     Indication: DEPRESSION
     Dosage: 150 MG, 1X/DAY
     Route: 064
     Dates: start: 2013
  2. LORAZEPAM [Concomitant]
     Dosage: 1 MG, AS NEEDED
     Dates: start: 2013, end: 2013
  3. FOLIC ACID [Concomitant]
     Dosage: UNK

REACTIONS (2)
  - Maternal exposure during pregnancy [Recovering/Resolving]
  - Coarctation of the aorta [Recovering/Resolving]
